FAERS Safety Report 11860817 (Version 1)
Quarter: 2015Q4

REPORT INFORMATION
  Report Type: Spontaneous
  Country: US (occurrence: US)
  Receive Date: 20151222
  Receipt Date: 20151222
  Transmission Date: 20160305
  Serious: Yes (Hospitalization, Other)
  Sender: FDA-Public Use
  Company Number: US-UNICHEM LABORATORIES LIMITED-UCM201512-000895

PATIENT
  Sex: Female

DRUGS (16)
  1. VALIUM [Concomitant]
     Active Substance: DIAZEPAM
  2. LEVOTHYROXINE SODIUM. [Concomitant]
     Active Substance: LEVOTHYROXINE SODIUM
  3. METOPROLOL TARTRATE. [Concomitant]
     Active Substance: METOPROLOL TARTRATE
  4. ALLBUTEROL HFA [Concomitant]
  5. ASPIRIN. [Concomitant]
     Active Substance: ASPIRIN
     Indication: CORONARY ARTERY DISEASE
  6. LEVOTHYROXINE SODIUM. [Concomitant]
     Active Substance: LEVOTHYROXINE SODIUM
  7. SIMVASTATIN. [Concomitant]
     Active Substance: SIMVASTATIN
  8. BENTYL [Concomitant]
     Active Substance: DICYCLOMINE HYDROCHLORIDE
  9. HYDROCHLOROTHIAZIDE. [Suspect]
     Active Substance: HYDROCHLOROTHIAZIDE
  10. RANTIDINE HCL [Concomitant]
  11. PLAVIX [Suspect]
     Active Substance: CLOPIDOGREL BISULFATE
  12. METFORMIN HCL [Concomitant]
     Active Substance: METFORMIN HYDROCHLORIDE
  13. XANAX [Concomitant]
     Active Substance: ALPRAZOLAM
  14. LACTULOSE. [Concomitant]
     Active Substance: LACTULOSE
  15. NORCO [Concomitant]
     Active Substance: ACETAMINOPHEN\HYDROCODONE BITARTRATE
  16. CLONIDINE HCL [Concomitant]
     Active Substance: CLONIDINE HYDROCHLORIDE

REACTIONS (8)
  - Pain in extremity [Unknown]
  - Rectal haemorrhage [Unknown]
  - Colitis ischaemic [Unknown]
  - Back pain [Unknown]
  - Irritable bowel syndrome [Unknown]
  - Hypertension [Unknown]
  - Abdominal pain [Unknown]
  - Acute kidney injury [Unknown]
